FAERS Safety Report 23626223 (Version 1)
Quarter: 2024Q1

REPORT INFORMATION
  Report Type: Spontaneous
  Country: CN (occurrence: CN)
  Receive Date: 20240313
  Receipt Date: 20240313
  Transmission Date: 20240410
  Serious: Yes (Other)
  Sender: FDA-Public Use
  Company Number: CN-Jiangsu Hansoh Pharmaceutical Co., Ltd-2154344

PATIENT
  Age: 64 Year
  Sex: Male
  Weight: 55.35 kg

DRUGS (3)
  1. DECITABINE [Suspect]
     Active Substance: DECITABINE
     Route: 041
     Dates: start: 20240227, end: 20240229
  2. CYTARABINE [Suspect]
     Active Substance: CYTARABINE
     Route: 041
     Dates: start: 20240222, end: 20240226
  3. VENETOCLAX [Suspect]
     Active Substance: VENETOCLAX
     Route: 048
     Dates: start: 20240227, end: 20240229

REACTIONS (3)
  - Nausea [Recovering/Resolving]
  - Vomiting [Recovering/Resolving]
  - Eating disorder [Recovering/Resolving]

NARRATIVE: CASE EVENT DATE: 20240228
